FAERS Safety Report 8399922-9 (Version None)
Quarter: 2012Q2

REPORT INFORMATION
  Report Type: 
  Country: None (occurrence: None)
  Receive Date: 20120531
  Receipt Date: 20120521
  Transmission Date: 20120825
  Serious: Yes (Hospitalization, Other)
  Sender: FDA-Public Use
  Company Number: US-ELI_LILLY_AND_COMPANY-US201205007612

PATIENT
  Sex: Female

DRUGS (19)
  1. PREDNISONE TAB [Concomitant]
     Dosage: UNK, QD
  2. LEXAPRO [Concomitant]
     Dosage: UNK, QD
  3. METHOTREXATE [Concomitant]
     Dosage: UNK, QD
  4. SYNTHROID [Concomitant]
     Dosage: UNK, QD
  5. CALCIUM [Concomitant]
     Dosage: UNK, QD
  6. ZYMAR [Concomitant]
     Dosage: UNK, QD
  7. FORTEO [Suspect]
     Indication: OSTEOPOROSIS
     Dosage: 20 UG, QD
  8. AMIODARONE HCL [Concomitant]
     Dosage: UNK, 5/W
  9. BROMFENAC [Concomitant]
     Dosage: UNK, QD
  10. ZOFRAN [Concomitant]
     Dosage: UNK, QD
  11. MIRALAX [Concomitant]
     Dosage: UNK, QD
  12. METOPROLOL TARTRATE [Concomitant]
     Dosage: UNK, QD
  13. LOSART [Concomitant]
     Dosage: UNK, QD
  14. NEXIUM [Concomitant]
     Dosage: UNK, QD
  15. AMLODIPINE [Concomitant]
     Dosage: UNK, WEEKLY (1/W)
  16. COMBIGAN [Concomitant]
     Dosage: UNK, QD
  17. ASPIRIN [Concomitant]
     Dosage: UNK UNK, QD
  18. VOLTAREN [Concomitant]
     Dosage: UNK, QD
     Route: 061
  19. DURASAL [Concomitant]
     Dosage: UNK, QD

REACTIONS (4)
  - LOSS OF CONSCIOUSNESS [None]
  - UPPER LIMB FRACTURE [None]
  - RHEUMATOID ARTHRITIS [None]
  - FALL [None]
